FAERS Safety Report 6371165-X (Version None)
Quarter: 2009Q3

REPORT INFORMATION
  Report Type: 
  Country: None (occurrence: None)
  Receive Date: 20090923
  Receipt Date: 20090917
  Transmission Date: 20100115
  Serious: Yes (Death)
  Sender: FDA-Public Use
  Company Number: BE-MERCK-0909BEL00010

PATIENT
  Age: 56 Year
  Sex: Male
  Weight: 68 kg

DRUGS (4)
  1. CANCIDAS [Suspect]
     Indication: FUNGAL INFECTION
     Route: 041
     Dates: start: 20090601, end: 20090701
  2. FLUCONAZOLE [Concomitant]
     Indication: PROPHYLAXIS
     Route: 041
     Dates: start: 20090505, end: 20090531
  3. CLARITHROMYCIN [Concomitant]
     Indication: BACTERIAL INFECTION
     Route: 065
     Dates: start: 20090624, end: 20090701
  4. AMPHOTERICIN B AND CHOLESTEROL AND DISTEAROYLPHOSPHATIDYLGLYCEROL AND [Concomitant]
     Indication: FUNGAL INFECTION
     Route: 041
     Dates: start: 20090618, end: 20090701

REACTIONS (3)
  - BACTERIAL INFECTION [None]
  - CONDITION AGGRAVATED [None]
  - FUNGAL INFECTION [None]
